FAERS Safety Report 10110300 (Version 1)
Quarter: 2014Q2

REPORT INFORMATION
  Report Type: Spontaneous
  Country: US (occurrence: US)
  Receive Date: 20140425
  Receipt Date: 20140425
  Transmission Date: 20141212
  Serious: Yes (Hospitalization)
  Sender: FDA-Public Use
  Company Number: US-SA-2014SA052519

PATIENT
  Age: 41 Year
  Sex: Female

DRUGS (1)
  1. LUMIZYME [Suspect]
     Indication: GLYCOGEN STORAGE DISEASE TYPE II
     Route: 042
     Dates: start: 20100927

REACTIONS (6)
  - Urinary tract infection [Unknown]
  - Pyrexia [Unknown]
  - Blood potassium decreased [Unknown]
  - Disorientation [Unknown]
  - Dizziness [Unknown]
  - Fatigue [Unknown]
